FAERS Safety Report 5324190-1 (Version None)
Quarter: 2007Q2

REPORT INFORMATION
  Report Type: 
  Country: None (occurrence: None)
  Receive Date: 20070507
  Receipt Date: 20070426
  Transmission Date: 20071010
  Serious: Yes (Death)
  Sender: FDA-Public Use
  Company Number: 2007SP008254

PATIENT
  Age: 23 Year
  Sex: Male

DRUGS (2)
  1. RIBAVIRIN [Suspect]
     Indication: PARAINFLUENZAE VIRUS INFECTION
     Dosage: 990 MG; QD
     Dates: start: 20060526, end: 20060529
  2. RIBAVIRIN [Suspect]
     Indication: PARAINFLUENZAE VIRUS INFECTION
     Dosage: 990 MG; QD
     Dates: start: 20060530, end: 20060531

REACTIONS (1)
  - DEATH [None]
